FAERS Safety Report 21017072 (Version 1)
Quarter: 2022Q2

REPORT INFORMATION
  Report Type: Spontaneous
  Country: US (occurrence: US)
  Receive Date: 20220628
  Receipt Date: 20220628
  Transmission Date: 20220721
  Serious: No
  Sender: FDA-Public Use
  Company Number: US-PFIZER INC-202200898862

PATIENT

DRUGS (1)
  1. PAXLOVID [Suspect]
     Active Substance: NIRMATRELVIR\RITONAVIR
     Indication: COVID-19 treatment
     Dosage: UNK

REACTIONS (8)
  - Urticaria [Unknown]
  - Dyspnoea [Unknown]
  - Throat tightness [Unknown]
  - Dysphonia [Unknown]
  - Diarrhoea [Unknown]
  - Myalgia [Unknown]
  - Vision blurred [Unknown]
  - Feeling abnormal [Unknown]
